FAERS Safety Report 7692982-X (Version None)
Quarter: 2011Q3

REPORT INFORMATION
  Report Type: 
  Country: None (occurrence: None)
  Receive Date: 20110819
  Receipt Date: 20110808
  Transmission Date: 20111222
  Serious: Yes (Hospitalization)
  Sender: FDA-Public Use
  Company Number: JP-JNJFOC-20110406365

PATIENT
  Sex: Female

DRUGS (19)
  1. REMICADE [Suspect]
     Route: 042
     Dates: start: 20100513
  2. REMICADE [Suspect]
     Route: 042
     Dates: start: 20100218
  3. TANATRIL [Concomitant]
     Indication: HYPERTENSION
     Route: 048
     Dates: start: 20050131
  4. ONEALFA [Concomitant]
     Indication: OSTEOPOROSIS
     Route: 048
     Dates: start: 20070209
  5. OMEPRAZOLE [Concomitant]
     Indication: GASTROOESOPHAGEAL REFLUX DISEASE
     Dates: start: 20070827
  6. ATELEC [Concomitant]
     Indication: HYPERTENSION
     Route: 048
     Dates: start: 20080326
  7. REMICADE [Suspect]
     Route: 042
     Dates: start: 20100708
  8. REMICADE [Suspect]
     Route: 042
     Dates: start: 20110218
  9. PLAVIX [Concomitant]
     Indication: CEREBRAL INFARCTION
     Route: 048
     Dates: start: 20091105
  10. EVISTA [Concomitant]
     Indication: OSTEOPOROSIS
     Route: 048
     Dates: start: 20110331
  11. AZULFIDINE [Concomitant]
     Indication: RHEUMATOID ARTHRITIS
     Route: 048
     Dates: start: 20090124
  12. REMICADE [Suspect]
     Route: 042
     Dates: start: 20100902
  13. REMICADE [Suspect]
     Route: 042
     Dates: start: 20101028
  14. LENDORMIN [Concomitant]
     Indication: INSOMNIA
     Route: 048
     Dates: start: 20060614
  15. METHOTREXATE [Concomitant]
     Route: 048
  16. REMICADE [Suspect]
     Indication: RHEUMATOID ARTHRITIS
     Route: 042
     Dates: start: 20101224
  17. REMICADE [Suspect]
     Route: 042
     Dates: start: 20100318
  18. REMICADE [Suspect]
     Route: 042
     Dates: start: 20100204
  19. BONOTEO [Concomitant]
     Indication: OSTEOPOROSIS
     Route: 048
     Dates: start: 20100604

REACTIONS (1)
  - TUBERCULOUS PLEURISY [None]
